FAERS Safety Report 16986035 (Version 1)
Quarter: 2019Q4

REPORT INFORMATION
  Report Type: Spontaneous
  Country: US (occurrence: US)
  Receive Date: 20190917
  Receipt Date: 20190917
  Transmission Date: 20200122
  Serious: No
  Sender: FDA-Public Use
  Company Number: None

PATIENT
  Age: 71 Year
  Weight: 73.94 kg

DRUGS (7)
  1. DILTIZEM [Concomitant]
  2. PRAVASTATIN. [Concomitant]
     Active Substance: PRAVASTATIN
  3. STOOL SOFTENER (DOCUSATE) [Concomitant]
     Active Substance: DOCUSATE
  4. MULTAQ [Concomitant]
     Active Substance: DRONEDARONE
  5. VITAMIN B12 [Concomitant]
     Active Substance: CYANOCOBALAMIN
  6. WARFARIN [Concomitant]
     Active Substance: WARFARIN
  7. TOVIAZ [Suspect]
     Active Substance: FESOTERODINE FUMARATE
     Indication: HYPERTONIC BLADDER
     Dosage: ?          QUANTITY:1 DF DOSAGE FORM;?
     Route: 048
     Dates: start: 20190827, end: 20190903

REACTIONS (3)
  - Urinary retention [None]
  - Medical device site discomfort [None]
  - Urinary tract disorder [None]

NARRATIVE: CASE EVENT DATE: 20190903
